APPROVED DRUG PRODUCT: LAPATINIB DITOSYLATE
Active Ingredient: LAPATINIB DITOSYLATE
Strength: EQ 250MG BASE
Dosage Form/Route: TABLET;ORAL
Application: A217968 | Product #001 | TE Code: AB
Applicant: TEVA PHARMACEUTICALS USA INC
Approved: Aug 16, 2024 | RLD: No | RS: No | Type: RX